FAERS Safety Report 9485370 (Version 4)
Quarter: 2013Q4

REPORT INFORMATION
  Report Type: Report from Study
  Country: US (occurrence: US)
  Receive Date: 20130828
  Receipt Date: 20131024
  Transmission Date: 20140711
  Serious: Yes (Hospitalization)
  Sender: FDA-Public Use
  Company Number: US-ROCHE-1256347

PATIENT
  Age: 54 Year
  Sex: Female
  Weight: 68.19 kg

DRUGS (2)
  1. PEGASYS [Suspect]
     Indication: CHRONIC HEPATITIS C
     Dosage: PROCLICK INJECTOR
     Route: 065
     Dates: start: 20130626, end: 20130820
  2. RIBAPAK [Suspect]
     Indication: CHRONIC HEPATITIS C
     Route: 065
     Dates: start: 20130626, end: 20130813

REACTIONS (13)
  - Constipation [Unknown]
  - Pneumonia [Recovered/Resolved]
  - White blood cell count decreased [Unknown]
  - Tongue discolouration [Unknown]
  - Injection site bruising [Unknown]
  - Nausea [Unknown]
  - Bronchitis [Recovering/Resolving]
  - Restless legs syndrome [Unknown]
  - Stomatitis [Unknown]
  - Oral pain [Unknown]
  - Glossodynia [Unknown]
  - Dysphonia [Unknown]
  - Fall [Unknown]
